FAERS Safety Report 7581070 (Version 5)
Quarter: 2013Q4

REPORT INFORMATION
  Report Type: Report from Study
  Country: US (occurrence: US)
  Receive Date: 20100910
  Receipt Date: 20131226
  Transmission Date: 20140711
  Serious: Yes (Hospitalization)
  Sender: FDA-Public Use
  Company Number: US-JNJFOC-20100900689

PATIENT
  Age: 72 Year
  Sex: Female
  Weight: 80 kg

DRUGS (14)
  1. GOLIMUMAB [Suspect]
     Route: 058
  2. GOLIMUMAB [Suspect]
     Indication: RHEUMATOID ARTHRITIS
     Route: 058
     Dates: start: 20100224, end: 20100519
  3. PLACEBO [Suspect]
     Indication: RHEUMATOID ARTHRITIS
     Route: 058
     Dates: start: 20100224, end: 20100519
  4. PROPOXYPHENE NAPSYLATE [Concomitant]
     Indication: PAIN
  5. CELECOXIB [Concomitant]
  6. CYCLOBENZAPRINE [Concomitant]
  7. SODIUM DOCUSATE [Concomitant]
  8. HYDROCODONE [Concomitant]
  9. CIPROFLOXACIN [Concomitant]
  10. PREDNISONE [Concomitant]
     Indication: RHEUMATOID ARTHRITIS
     Dates: start: 20100504
  11. PREDNISONE [Concomitant]
     Indication: RHEUMATOID ARTHRITIS
     Dates: start: 20100430
  12. PREDNISONE [Concomitant]
     Indication: RHEUMATOID ARTHRITIS
     Dates: start: 20100426
  13. ANTIVERT [Concomitant]
     Indication: VERTIGO
  14. METHOTREXATE [Concomitant]
     Indication: RHEUMATOID ARTHRITIS
     Route: 048
     Dates: start: 20100630

REACTIONS (2)
  - Back pain [Recovered/Resolved]
  - Wound infection staphylococcal [Recovered/Resolved]
